FAERS Safety Report 7877658-8 (Version None)
Quarter: 2011Q4

REPORT INFORMATION
  Report Type: 
  Country: None (occurrence: None)
  Receive Date: 20111031
  Receipt Date: 20111031
  Transmission Date: 20120403
  Serious: Yes (Other)
  Sender: FDA-Public Use
  Company Number: None

PATIENT
  Age: 33 Year
  Weight: 73.481 kg

DRUGS (6)
  1. FLONASE [Concomitant]
  2. SINGULAIR [Concomitant]
  3. PROZAC [Concomitant]
     Route: 048
  4. CEPHALEXIN [Suspect]
     Indication: LYMPHADENOPATHY
     Dosage: 500MG.
     Route: 048
     Dates: start: 20110826, end: 20110827
  5. CEPHALEXIN [Suspect]
     Indication: ERYTHEMA
     Dosage: 500MG.
     Route: 048
     Dates: start: 20110826, end: 20110827
  6. LEVOTHROID [Concomitant]
     Route: 048

REACTIONS (2)
  - RASH [None]
  - GENITAL RASH [None]
